FAERS Safety Report 4545454-5 (Version None)
Quarter: 2005Q1

REPORT INFORMATION
  Report Type: 
  Country: None (occurrence: None)
  Receive Date: 20050103
  Receipt Date: 20041217
  Transmission Date: 20050727
  Serious: Yes (Hospitalization, Other)
  Sender: FDA-Public Use
  Company Number: 2004117608

PATIENT
  Age: 57 Year
  Sex: Female
  Weight: 68.0396 kg

DRUGS (3)
  1. BEXTRA [Suspect]
     Indication: OSTEOARTHRITIS
     Dosage: 20 MG (20 MG, 1 IN 1 D), ORAL
     Route: 048
     Dates: start: 20020101, end: 20041201
  2. MULTIVITAMINS (ASCORBIC ACID, ERGOCALCIERDOL, FOLIC ACID, NICOTINAMIDE [Concomitant]
  3. CALCIUM 9CALCIUM) [Concomitant]

REACTIONS (2)
  - KNEE ARTHROPLASTY [None]
  - TIBIA FRACTURE [None]
